FAERS Safety Report 8363756-1 (Version None)
Quarter: 2012Q2

REPORT INFORMATION
  Report Type: 
  Country: None (occurrence: None)
  Receive Date: 20120516
  Receipt Date: 20120508
  Transmission Date: 20120825
  Serious: Yes (Other)
  Sender: FDA-Public Use
  Company Number: US-INCYTE CORPORATION-2012IN000513

PATIENT
  Sex: Female
  Weight: 60.317 kg

DRUGS (8)
  1. OMEPRAZOLE [Concomitant]
     Dosage: UNK
  2. JAKAFI [Suspect]
     Dosage: 15 MG AM, 5 MG PM, BID
     Route: 048
     Dates: start: 20120101
  3. NIFEDIPINE [Concomitant]
     Dosage: UNK
  4. JAKAFI [Suspect]
     Indication: MYELOFIBROSIS
     Dosage: 15 MG, BID
     Route: 048
     Dates: start: 20120309
  5. DIOVAN HCT [Concomitant]
     Dosage: UNK
  6. LEVOTHYROXINE SODIUM [Concomitant]
     Dosage: UNK
  7. SIMVASTATIN [Concomitant]
     Dosage: UNK
  8. NIFEDIPINE [Concomitant]
     Dosage: UNK

REACTIONS (3)
  - HEADACHE [None]
  - ABDOMINAL PAIN [None]
  - FATIGUE [None]
